FAERS Safety Report 5263425-0 (Version None)
Quarter: 2007Q1

REPORT INFORMATION
  Report Type: 
  Country: None (occurrence: None)
  Receive Date: 20070313
  Receipt Date: 20070228
  Transmission Date: 20070707
  Serious: Yes (Other)
  Sender: FDA-Public Use
  Company Number: JP-PFIZER INC-2007016779

PATIENT
  Age: 78 Year
  Sex: Female

DRUGS (1)
  1. DIFLUCAN [Suspect]
     Indication: INFECTION PROPHYLAXIS
     Dosage: DAILY DOSE:400MG
     Route: 048

REACTIONS (1)
  - BLOOD POTASSIUM INCREASED [None]
